FAERS Safety Report 9548295 (Version 2)
Quarter: 2013Q4

REPORT INFORMATION
  Report Type: Spontaneous
  Country: GB (occurrence: GB)
  Receive Date: 20130924
  Receipt Date: 20131009
  Transmission Date: 20140711
  Serious: Yes (Other)
  Sender: FDA-Public Use
  Company Number: GB-PFIZER INC-2013268014

PATIENT
  Age: 54 Year
  Sex: Male
  Weight: 88.9 kg

DRUGS (1)
  1. XALATAN [Suspect]
     Indication: GLAUCOMA
     Dosage: 1 DROP EVERY HOUR, BOTH EYES.
     Route: 047
     Dates: end: 20130731

REACTIONS (6)
  - Off label use [Unknown]
  - Erythema [Recovered/Resolved]
  - Pain [Recovered/Resolved]
  - Burning sensation [Recovered/Resolved]
  - Intraocular pressure increased [Recovered/Resolved]
  - Product formulation issue [Unknown]
